FAERS Safety Report 5172404-3 (Version None)
Quarter: 2006Q4

REPORT INFORMATION
  Report Type: 
  Country: None (occurrence: None)
  Receive Date: 20061213
  Receipt Date: 20060818
  Transmission Date: 20070319
  Serious: No
  Sender: FDA-Public Use
  Company Number: US-AMGEN-KDL190689

PATIENT
  Sex: Female

DRUGS (8)
  1. ENBREL [Suspect]
     Indication: RHEUMATOID ARTHRITIS
     Route: 058
  2. SULFASALAZINE [Concomitant]
  3. HYDROXYCHLOROQUINE SULFATE [Concomitant]
  4. CELEBREX [Concomitant]
  5. OXYCODONE HCL [Concomitant]
  6. FERROUS GLUCONATE [Concomitant]
  7. FOLIC ACID [Concomitant]
  8. METOPROLOL SUCCINATE [Concomitant]

REACTIONS (1)
  - INJECTION SITE REACTION [None]
